FAERS Safety Report 18559664 (Version 1)
Quarter: 2020Q4

REPORT INFORMATION
  Report Type: Spontaneous
  Country: US (occurrence: US)
  Receive Date: 20201129
  Receipt Date: 20201129
  Transmission Date: 20210114
  Serious: No
  Sender: FDA-Public Use
  Company Number: None

PATIENT
  Age: 33 Year
  Sex: Female
  Weight: 80.1 kg

DRUGS (11)
  1. GEODON [Suspect]
     Active Substance: ZIPRASIDONE HYDROCHLORIDE\ZIPRASIDONE MESYLATE
     Indication: BIPOLAR II DISORDER
     Route: 048
     Dates: start: 20201123, end: 20201126
  2. PROPRANOLOL [Concomitant]
     Active Substance: PROPRANOLOL HYDROCHLORIDE
  3. CYCLOBENZAPRINE. [Concomitant]
     Active Substance: CYCLOBENZAPRINE
  4. NAPROXEN. [Concomitant]
     Active Substance: NAPROXEN
  5. FLONASE ALBUTEROL [Concomitant]
  6. SERTRALINE [Concomitant]
     Active Substance: SERTRALINE HYDROCHLORIDE
  7. ROZEREM [Concomitant]
     Active Substance: RAMELTEON
  8. CETIRIZINE [Concomitant]
     Active Substance: CETIRIZINE HYDROCHLORIDE
  9. FOCALIN XR [Concomitant]
     Active Substance: DEXMETHYLPHENIDATE HYDROCHLORIDE
  10. CLONAZEPAM. [Concomitant]
     Active Substance: CLONAZEPAM
  11. MIRENA [Concomitant]
     Active Substance: LEVONORGESTREL

REACTIONS (15)
  - Pain of skin [None]
  - Hypomania [None]
  - Tachycardia [None]
  - Dry skin [None]
  - Rash pruritic [None]
  - Nasal dryness [None]
  - Dry mouth [None]
  - Headache [None]
  - Blood pressure diastolic increased [None]
  - Anxiety [None]
  - Skin discomfort [None]
  - Withdrawal syndrome [None]
  - Skin exfoliation [None]
  - Dry throat [None]
  - Dry eye [None]

NARRATIVE: CASE EVENT DATE: 20201123
